FAERS Safety Report 5053070-4 (Version None)
Quarter: 2006Q3

REPORT INFORMATION
  Report Type: 
  Country: None (occurrence: None)
  Receive Date: 20060712
  Receipt Date: 20060629
  Transmission Date: 20061208
  Serious: Yes (Hospitalization, Other)
  Sender: FDA-Public Use
  Company Number: 2006082577

PATIENT
  Age: 45 Year
  Sex: Female
  Weight: 54.4316 kg

DRUGS (6)
  1. NEURONTIN [Suspect]
     Indication: NEURALGIA
     Dosage: 300 MG  (100 MG, 3 IN 1 D)
  2. LYRICA [Suspect]
     Indication: NEURALGIA
     Dosage: 300 MG (100 MG, 3 IN 1 D)
     Dates: start: 20060101
  3. LIPITOR [Concomitant]
  4. PREMARIN [Concomitant]
  5. LEXAPRO [Concomitant]
  6. HYDROCODONE BITARTRATE [Concomitant]

REACTIONS (4)
  - CHEST DISCOMFORT [None]
  - ORAL MUCOSAL BLISTERING [None]
  - PHOTOSENSITIVITY REACTION [None]
  - SUNBURN [None]
